FAERS Safety Report 4596139-0 (Version None)
Quarter: 2005Q1

REPORT INFORMATION
  Report Type: 
  Country: None (occurrence: None)
  Receive Date: 20050302
  Receipt Date: 20050208
  Transmission Date: 20050727
  Serious: Yes (Hospitalization)
  Sender: FDA-Public Use
  Company Number: JP-ROCHE-395403

PATIENT
  Age: 40 Year
  Sex: Female

DRUGS (3)
  1. TAMIFLU [Suspect]
     Route: 048
     Dates: start: 20050207, end: 20050207
  2. CALONAL [Concomitant]
     Route: 048
  3. SELBEX [Concomitant]
     Route: 048

REACTIONS (2)
  - NYSTAGMUS [None]
  - VOMITING [None]
